FAERS Safety Report 18472325 (Version 1)
Quarter: 2020Q4

REPORT INFORMATION
  Report Type: Spontaneous
  Country: DE (occurrence: DE)
  Receive Date: 20201106
  Receipt Date: 20201106
  Transmission Date: 20210114
  Serious: Yes (Life-Threatening, Other)
  Sender: FDA-Public Use
  Company Number: DE-TEVA-2020-DE-1813297

PATIENT
  Age: 49 Year
  Sex: Male
  Weight: 106 kg

DRUGS (2)
  1. TRAZODON 150 MG [Concomitant]
     Indication: NARCOLEPSY
     Dosage: 150 MILLIGRAM DAILY;
     Route: 048
  2. VIGIL (MODAFINIL) [Suspect]
     Active Substance: MODAFINIL
     Indication: NARCOLEPSY
     Dosage: UP TO A DOSAGE OF 400 MG, 1-2 PER DAY
     Route: 048
     Dates: start: 2001

REACTIONS (7)
  - Myocardial infarction [Unknown]
  - Fatigue [Not Recovered/Not Resolved]
  - Chest discomfort [Not Recovered/Not Resolved]
  - Dizziness [Unknown]
  - Vision blurred [Unknown]
  - Coronary artery disease [Not Recovered/Not Resolved]
  - Micturition urgency [Unknown]

NARRATIVE: CASE EVENT DATE: 20200503
